FAERS Safety Report 4468479-7 (Version None)
Quarter: 2004Q4

REPORT INFORMATION
  Report Type: 
  Country: None (occurrence: None)
  Receive Date: 20041006
  Receipt Date: 20040930
  Transmission Date: 20050328
  Serious: Yes (Hospitalization, Other)
  Sender: FDA-Public Use
  Company Number: 04-09-1369

PATIENT
  Age: 50 Year
  Sex: Male

DRUGS (6)
  1. FAMOTIDINE [Suspect]
     Dosage: 20MG INTRAVENOUS/2 DOSES
     Route: 042
  2. AMIODARONE [Concomitant]
  3. EPINEPHRINE [Concomitant]
  4. DOPAMINE HCL [Concomitant]
  5. FENTANYL [Concomitant]
  6. CEFAZOLIN [Concomitant]

REACTIONS (5)
  - ELECTROCARDIOGRAM QT CORRECTED INTERVAL PROLONGED [None]
  - NODAL RHYTHM [None]
  - POST PROCEDURAL COMPLICATION [None]
  - RENAL IMPAIRMENT [None]
  - TORSADE DE POINTES [None]
